FAERS Safety Report 7333499-1 (Version None)
Quarter: 2011Q1

REPORT INFORMATION
  Report Type: 
  Country: None (occurrence: None)
  Receive Date: 20110304
  Receipt Date: 20110223
  Transmission Date: 20110831
  Serious: Yes (Other)
  Sender: FDA-Public Use
  Company Number: US-WATSON-2011-02414

PATIENT
  Age: 79 Year
  Sex: Female

DRUGS (1)
  1. PREDNISONE (WATSON LABORATORIES) [Suspect]
     Indication: MYASTHENIA GRAVIS
     Dosage: 20 MG, DAILY
     Route: 048

REACTIONS (3)
  - DRUG WITHDRAWAL SYNDROME [None]
  - IMMUNE RECONSTITUTION SYNDROME [None]
  - CRYPTOCOCCAL CUTANEOUS INFECTION [None]
